FAERS Safety Report 21273584 (Version 1)
Quarter: 2022Q3

REPORT INFORMATION
  Report Type: Report from Study
  Country: FR (occurrence: None)
  Receive Date: 20220831
  Receipt Date: 20220831
  Transmission Date: 20221026
  Serious: Yes (Death, Hospitalization)
  Sender: FDA-Public Use
  Company Number: 2022A296331

PATIENT
  Age: 883 Month
  Sex: Male
  Weight: 88 kg

DRUGS (5)
  1. EVUSHELD [Suspect]
     Active Substance: CILGAVIMAB\TIXAGEVIMAB
     Indication: COVID-19 prophylaxis
     Dosage: 150.0MG ONCE/SINGLE ADMINISTRATION
     Route: 030
     Dates: start: 20220119
  2. EVUSHELD [Suspect]
     Active Substance: CILGAVIMAB\TIXAGEVIMAB
     Indication: COVID-19 prophylaxis
     Dosage: 150.0MG ONCE/SINGLE ADMINISTRATION
     Route: 030
     Dates: start: 20220621
  3. ANTI-COVID-19 VACCINATION [Concomitant]
     Dates: end: 20210916
  4. TACROLIMUS [Concomitant]
     Active Substance: TACROLIMUS
     Dates: end: 20210916
  5. PREDNISONE [Concomitant]
     Active Substance: PREDNISONE
     Dates: end: 20210916

REACTIONS (4)
  - COVID-19 [Fatal]
  - Acute respiratory distress syndrome [Fatal]
  - End stage renal disease [Fatal]
  - Product use issue [Unknown]

NARRATIVE: CASE EVENT DATE: 20220119
